FAERS Safety Report 4383757-8 (Version None)
Quarter: 2004Q2

REPORT INFORMATION
  Report Type: 
  Country: None (occurrence: None)
  Receive Date: 20040608
  Receipt Date: 20030708
  Transmission Date: 20050107
  Serious: Yes (Hospitalization, Other)
  Sender: FDA-Public Use
  Company Number: 200312331BCC

PATIENT
  Age: 16 Year
  Sex: Female
  Weight: 45.3597 kg

DRUGS (3)
  1. ALEVE [Suspect]
     Dosage: ORAL
     Dates: start: 20030707
  2. TYLENOL [Suspect]
     Dosage: ORAL
     Route: 048
     Dates: start: 20030707
  3. ADVIL [Suspect]
     Dosage: 10000 MG, ONCE, ORAL
     Route: 048
     Dates: start: 20030707

REACTIONS (2)
  - ABDOMINAL PAIN [None]
  - VOMITING [None]
